FAERS Safety Report 25023709 (Version 1)
Quarter: 2025Q1

REPORT INFORMATION
  Report Type: Spontaneous
  Country: US (occurrence: None)
  Receive Date: 20250228
  Receipt Date: 20250228
  Transmission Date: 20250409
  Serious: Yes (unspecified)
  Sender: FDA-CTU
  Company Number: None

PATIENT
  Age: 22 Year
  Sex: Male
  Weight: 76.5 kg

DRUGS (2)
  1. MULTIHANCE [Suspect]
     Active Substance: GADOBENATE DIMEGLUMINE
     Route: 042
     Dates: start: 20250227
  2. MULTIHANCE [Concomitant]
     Active Substance: GADOBENATE DIMEGLUMINE
     Dates: start: 20250227, end: 20250227

REACTIONS (5)
  - Pruritus [None]
  - Urticaria [None]
  - Oropharyngeal discomfort [None]
  - Vomiting [None]
  - Ocular hyperaemia [None]

NARRATIVE: CASE EVENT DATE: 20250227
